FAERS Safety Report 4504613-8 (Version None)
Quarter: 2004Q4

REPORT INFORMATION
  Report Type: 
  Country: None (occurrence: None)
  Receive Date: 20041118
  Receipt Date: 20041108
  Transmission Date: 20050328
  Serious: Yes (Life-Threatening)
  Sender: FDA-Public Use
  Company Number: JP-GLAXOSMITHKLINE-B0351247A

PATIENT
  Age: 50 Year
  Sex: Female
  Weight: 47 kg

DRUGS (6)
  1. ZOVIRAX [Suspect]
     Indication: HERPES ZOSTER
     Route: 042
     Dates: start: 20041020, end: 20041029
  2. SANDIMMUNE [Concomitant]
     Route: 065
  3. PROGRAF [Concomitant]
     Route: 065
  4. MEROPEN [Concomitant]
  5. MORPHINE HYDROCHLORIDE [Concomitant]
     Route: 065
  6. SERENACE [Concomitant]
     Route: 065

REACTIONS (1)
  - NERVOUS SYSTEM DISORDER [None]
